FAERS Safety Report 25243891 (Version 4)
Quarter: 2025Q2

REPORT INFORMATION
  Report Type: Spontaneous
  Country: DE (occurrence: DE)
  Receive Date: 20250428
  Receipt Date: 20250527
  Transmission Date: 20250717
  Serious: Yes (Hospitalization, Other)
  Sender: ALKEM
  Company Number: None

PATIENT
  Age: 10 Year
  Sex: Female

DRUGS (11)
  1. IBUPROFEN [Suspect]
     Active Substance: IBUPROFEN
     Indication: Migraine
     Route: 048
  2. ASPIRIN [Suspect]
     Active Substance: ASPIRIN
     Indication: Migraine
     Route: 065
  3. ASPIRIN [Suspect]
     Active Substance: ASPIRIN
     Route: 048
  4. ACETAMINOPHEN\ASPIRIN [Suspect]
     Active Substance: ACETAMINOPHEN\ASPIRIN
     Indication: Migraine
     Route: 065
  5. ACETAMINOPHEN\ASPIRIN [Suspect]
     Active Substance: ACETAMINOPHEN\ASPIRIN
     Indication: Headache
  6. FLUTICASONE [Concomitant]
     Active Substance: FLUTICASONE
     Indication: Respiratory symptom
  7. FLUTICASONE [Concomitant]
     Active Substance: FLUTICASONE
  8. FORMOTEROL [Concomitant]
     Active Substance: FORMOTEROL
     Indication: Respiratory symptom
     Dosage: 10 MICROGRAM, QD
  9. FORMOTEROL [Concomitant]
     Active Substance: FORMOTEROL
  10. MOMETASONE [Concomitant]
     Active Substance: MOMETASONE
     Indication: Product used for unknown indication
     Route: 045
  11. ALBUTEROL [Concomitant]
     Active Substance: ALBUTEROL
     Indication: Respiratory symptom
     Route: 065

REACTIONS (9)
  - NSAID exacerbated respiratory disease [Recovered/Resolved]
  - NSAID exacerbated respiratory disease [Recovered/Resolved]
  - Dyspnoea [Unknown]
  - Chronic rhinosinusitis with nasal polyps [Recovered/Resolved]
  - Asthma [Recovered/Resolved]
  - Obstructive airways disorder [Recovered/Resolved]
  - Drug hypersensitivity [Recovered/Resolved]
  - Contraindicated product administered [Unknown]
  - Drug intolerance [Unknown]

NARRATIVE: CASE EVENT DATE: 20200901
